FAERS Safety Report 24814503 (Version 1)
Quarter: 2025Q1

REPORT INFORMATION
  Report Type: Spontaneous
  Country: US (occurrence: None)
  Receive Date: 20250106
  Receipt Date: 20250106
  Transmission Date: 20250409
  Serious: Yes (Death)
  Sender: FDA-CTU
  Company Number: None

PATIENT
  Age: 81 Year
  Sex: Female

DRUGS (1)
  1. POMALYST [Suspect]
     Active Substance: POMALIDOMIDE
     Indication: Plasma cell myeloma
     Dosage: FREQUENCY : DAILY;?
     Route: 048
     Dates: start: 20241209, end: 20241228

REACTIONS (5)
  - Dehydration [None]
  - Diarrhoea [None]
  - Pneumonia [None]
  - Refusal of treatment by relative [None]
  - Hospice care [None]

NARRATIVE: CASE EVENT DATE: 20241228
